FAERS Safety Report 19877273 (Version 1)
Quarter: 2021Q3

REPORT INFORMATION
  Report Type: Spontaneous
  Country: US (occurrence: US)
  Receive Date: 20210923
  Receipt Date: 20210923
  Transmission Date: 20211014
  Serious: Yes (Other)
  Sender: FDA-Public Use
  Company Number: US-TEVA-2021-US-1956120

PATIENT
  Sex: Female

DRUGS (5)
  1. COPANLISIB. [Suspect]
     Active Substance: COPANLISIB
     Indication: PERIPHERAL T-CELL LYMPHOMA UNSPECIFIED
     Route: 042
  2. VOLAGIDEMAB. [Suspect]
     Active Substance: VOLAGIDEMAB
     Indication: HYPERGLYCAEMIA
     Route: 058
  3. DEXAMETHASONE. [Suspect]
     Active Substance: DEXAMETHASONE
     Indication: FATIGUE
     Dosage: 16 MILLIGRAM DAILY;
     Route: 065
  4. DEXAMETHASONE. [Suspect]
     Active Substance: DEXAMETHASONE
     Indication: PERIPHERAL T-CELL LYMPHOMA UNSPECIFIED
     Dosage: 40 MILLIGRAM DAILY;
     Route: 065
  5. DUVELISIB [Suspect]
     Active Substance: DUVELISIB
     Indication: PERIPHERAL T-CELL LYMPHOMA UNSPECIFIED
     Route: 065

REACTIONS (3)
  - Hyperglycaemia [Recovering/Resolving]
  - Gastrointestinal toxicity [Unknown]
  - Off label use [Unknown]
